FAERS Safety Report 9335531 (Version 6)
Quarter: 2014Q1

REPORT INFORMATION
  Report Type: Report from Study
  Country: US (occurrence: US)
  Receive Date: 20130605
  Receipt Date: 20140113
  Transmission Date: 20141002
  Serious: Yes (Other)
  Sender: FDA-Public Use
  Company Number: US-GLAXOSMITHKLINE-A1025612A

PATIENT
  Sex: Male

DRUGS (2)
  1. ADVAIR [Suspect]
     Indication: CHRONIC OBSTRUCTIVE PULMONARY DISEASE
     Route: 055
  2. ALBUTEROL [Suspect]
     Indication: CHRONIC OBSTRUCTIVE PULMONARY DISEASE
     Route: 055

REACTIONS (13)
  - Lung neoplasm malignant [Unknown]
  - Lung lobectomy [Unknown]
  - Post procedural complication [Unknown]
  - Feeling abnormal [Unknown]
  - Hypopnoea [Not Recovered/Not Resolved]
  - Visual impairment [Unknown]
  - Chest pain [Unknown]
  - Chronic obstructive pulmonary disease [Unknown]
  - Dyspnoea [Unknown]
  - Emphysema [Unknown]
  - Pain [Unknown]
  - Spinal operation [Unknown]
  - Muscle spasms [Unknown]
